APPROVED DRUG PRODUCT: PEMETREXED DISODIUM
Active Ingredient: PEMETREXED DISODIUM
Strength: EQ 500MG BASE/VIAL
Dosage Form/Route: POWDER;INTRAVENOUS
Application: A210047 | Product #001
Applicant: AMNEAL EU LTD
Approved: Aug 4, 2022 | RLD: No | RS: No | Type: DISCN